FAERS Safety Report 8190759-2 (Version None)
Quarter: 2012Q1

REPORT INFORMATION
  Report Type: 
  Country: None (occurrence: None)
  Receive Date: 20120307
  Receipt Date: 20120228
  Transmission Date: 20120608
  Serious: Yes (Hospitalization)
  Sender: FDA-Public Use
  Company Number: US-BAYER-2011-028357

PATIENT
  Age: 20 Year
  Sex: Female
  Weight: 102.4 kg

DRUGS (5)
  1. MOTRIN [Concomitant]
     Dosage: UNK
     Dates: start: 20080101, end: 20100101
  2. ADDERALL 5 [Concomitant]
     Indication: ATTENTION DEFICIT/HYPERACTIVITY DISORDER
     Dosage: UNK
     Dates: start: 20050101
  3. PRILOSEC [Concomitant]
  4. TRIVORA-21 [Concomitant]
     Indication: CONTRACEPTION
     Dosage: UNK
     Dates: start: 20100201
  5. YAZ [Suspect]
     Indication: CONTRACEPTION
     Dosage: UNK
     Dates: start: 20090101, end: 20100401

REACTIONS (3)
  - CHOLECYSTECTOMY [None]
  - CHOLECYSTITIS CHRONIC [None]
  - BILIARY DYSKINESIA [None]
